FAERS Safety Report 19806200 (Version 5)
Quarter: 2022Q1

REPORT INFORMATION
  Report Type: Report from Study
  Country: US (occurrence: US)
  Receive Date: 20210909
  Receipt Date: 20220118
  Transmission Date: 20220423
  Serious: No
  Sender: FDA-Public Use
  Company Number: NVSC2021US204303

PATIENT
  Sex: Male

DRUGS (1)
  1. ILARIS [Suspect]
     Active Substance: CANAKINUMAB
     Indication: Cryopyrin associated periodic syndrome
     Dosage: 300 MG, QMO
     Route: 058

REACTIONS (5)
  - COVID-19 [Recovered/Resolved]
  - Rash [Unknown]
  - Cough [Unknown]
  - Product dose omission issue [Unknown]
  - Condition aggravated [Unknown]
